FAERS Safety Report 8866276 (Version 2)
Quarter: 2013Q1

REPORT INFORMATION
  Report Type: Spontaneous
  Country: US (occurrence: US)
  Receive Date: 20121025
  Receipt Date: 20121126
  Transmission Date: 20140127
  Serious: Yes (Hospitalization)
  Sender: FDA-Public Use
  Company Number: US-ASTRAZENECA-2012SE79289

PATIENT
  Age: 26219 Day
  Sex: Male
  Weight: 87 kg

DRUGS (2)
  1. NEXIUM [Suspect]
     Route: 048
     Dates: start: 20121005
  2. UNSPECIFIED MEDICATIONS [Concomitant]
     Route: 065

REACTIONS (2)
  - Cerebrovascular accident [Unknown]
  - Diabetes mellitus [Unknown]
